FAERS Safety Report 10713857 (Version 1)
Quarter: 2015Q1

REPORT INFORMATION
  Report Type: Spontaneous
  Country: JP (occurrence: JP)
  Receive Date: 20150115
  Receipt Date: 20150115
  Transmission Date: 20150721
  Serious: Yes (Hospitalization)
  Sender: FDA-Public Use
  Company Number: PHHY2015JP004323

PATIENT
  Age: 28 Year
  Sex: Female

DRUGS (3)
  1. IFOSFAMIDE. [Suspect]
     Active Substance: IFOSFAMIDE
     Indication: RETROPERITONEAL NEOPLASM
     Route: 065
  2. PAZOPANIB [Concomitant]
     Active Substance: PAZOPANIB
     Indication: PRODUCT USED FOR UNKNOWN INDICATION
  3. DOXORUBICIN [Suspect]
     Active Substance: DOXORUBICIN
     Indication: RETROPERITONEAL NEOPLASM
     Route: 065

REACTIONS (5)
  - Malnutrition [Unknown]
  - Nutritional condition abnormal [Recovering/Resolving]
  - Nausea [Recovering/Resolving]
  - Eating disorder [Unknown]
  - Diarrhoea [Recovering/Resolving]
